FAERS Safety Report 5337298-1 (Version None)
Quarter: 2007Q2

REPORT INFORMATION
  Report Type: 
  Country: None (occurrence: None)
  Receive Date: 20070529
  Receipt Date: 20070517
  Transmission Date: 20071010
  Serious: Yes (Other)
  Sender: FDA-Public Use
  Company Number: TN-PFIZER INC-2007039427

PATIENT
  Age: 35 Year
  Sex: Female

DRUGS (3)
  1. VORICONAZOLE [Suspect]
     Indication: ASPERGILLOSIS
     Dosage: DAILY DOSE:200MG
     Route: 048
  2. AZATHIOPRINE [Concomitant]
  3. PREDNISONE TAB [Concomitant]

REACTIONS (5)
  - DRY MOUTH [None]
  - DRY SKIN [None]
  - LIP DRY [None]
  - MELANODERMIA [None]
  - PHOTOSENSITIVITY REACTION [None]
